FAERS Safety Report 8195640-0 (Version None)
Quarter: 2012Q1

REPORT INFORMATION
  Report Type: 
  Country: None (occurrence: None)
  Receive Date: 20120308
  Receipt Date: 20120302
  Transmission Date: 20120608
  Serious: Yes (Other)
  Sender: FDA-Public Use
  Company Number: FR-PFIZER INC-2012056339

PATIENT
  Age: 50 Year
  Sex: Female

DRUGS (1)
  1. VFEND [Suspect]

REACTIONS (1)
  - TOXIC SKIN ERUPTION [None]
